FAERS Safety Report 4422602-9 (Version None)
Quarter: 2004Q3

REPORT INFORMATION
  Report Type: 
  Country: None (occurrence: None)
  Receive Date: 20040713
  Receipt Date: 20040319
  Transmission Date: 20050211
  Serious: No
  Sender: FDA-Public Use
  Company Number: PHEH2004US02345

PATIENT
  Age: 41 Year
  Sex: Female

DRUGS (3)
  1. ELIDEL [Suspect]
     Indication: DERMATITIS ATOPIC
     Dosage: BID, TOPICAL
     Route: 061
     Dates: start: 20031216
  2. ETHANOL(ETHANOL) [Suspect]
  3. DESLORATADINE (DESLORATADINE) [Concomitant]

REACTIONS (4)
  - ALCOHOL INTERACTION [None]
  - BURNING SENSATION [None]
  - ERYTHEMA [None]
  - RASH [None]
